APPROVED DRUG PRODUCT: COMBIPATCH
Active Ingredient: ESTRADIOL; NORETHINDRONE ACETATE
Strength: 0.05MG/24HR;0.25MG/24HR
Dosage Form/Route: FILM, EXTENDED RELEASE;TRANSDERMAL
Application: N020870 | Product #002
Applicant: NOVEN PHARMACEUTICALS INC
Approved: Aug 7, 1998 | RLD: Yes | RS: Yes | Type: RX